FAERS Safety Report 10951361 (Version 4)
Quarter: 2015Q2

REPORT INFORMATION
  Report Type: Report from Study
  Country: PT (occurrence: PT)
  Receive Date: 20150324
  Receipt Date: 20150626
  Transmission Date: 20150821
  Serious: Yes (Hospitalization)
  Sender: FDA-Public Use
  Company Number: PHHY2015PT027063

PATIENT
  Age: 26 Year
  Sex: Female

DRUGS (1)
  1. EXTAVIA [Suspect]
     Active Substance: INTERFERON BETA-1B
     Indication: MULTIPLE SCLEROSIS
     Dosage: 250 UG/ML, QOD
     Route: 058
     Dates: start: 20110901

REACTIONS (15)
  - Multiple sclerosis relapse [Recovered/Resolved]
  - Drug administration error [Not Recovered/Not Resolved]
  - Syncope [Recovering/Resolving]
  - Feeling hot [Recovered/Resolved]
  - Dizziness [Recovering/Resolving]
  - Presyncope [Not Recovered/Not Resolved]
  - Malaise [Recovered/Resolved]
  - Malaise [Not Recovered/Not Resolved]
  - Vision blurred [Recovered/Resolved]
  - Presyncope [Recovered/Resolved]
  - Feeling hot [Recovering/Resolving]
  - Anxiety [Recovering/Resolving]
  - Blood pressure fluctuation [Recovered/Resolved]
  - Feeling abnormal [Recovering/Resolving]
  - Dizziness [Recovered/Resolved]

NARRATIVE: CASE EVENT DATE: 20150109
